FAERS Safety Report 19952802 (Version 1)
Quarter: 2021Q4

REPORT INFORMATION
  Report Type: Spontaneous
  Country: CN (occurrence: CN)
  Receive Date: 20211013
  Receipt Date: 20211013
  Transmission Date: 20220304
  Serious: Yes (Other)
  Sender: FDA-Public Use
  Company Number: CN-BAXTER-2021BAX028665

PATIENT
  Age: 55 Year
  Sex: Female
  Weight: 56 kg

DRUGS (10)
  1. CYCLOPHOSPHAMIDE [Suspect]
     Active Substance: CYCLOPHOSPHAMIDE
     Indication: Breast cancer female
     Dosage: FIRST CHEMOTHERAPY
     Route: 065
  2. CYCLOPHOSPHAMIDE [Suspect]
     Active Substance: CYCLOPHOSPHAMIDE
     Dosage: NS 40ML + CYCLOPHOSPHAMIDE 0.8G, SECOND CHEMOTHERAPY
     Route: 041
     Dates: start: 20200624, end: 20200624
  3. CYCLOPHOSPHAMIDE [Suspect]
     Active Substance: CYCLOPHOSPHAMIDE
     Dosage: DOSE REINTRODUCED, NS+ CYCLOPHOSPHAMIDE
     Route: 041
  4. SODIUM CHLORIDE [Suspect]
     Active Substance: SODIUM CHLORIDE
     Indication: Medication dilution
     Dosage: NS 40ML + CYCLOPHOSPHAMIDE 0.8G, SECOND CHEMOTHERAPY
     Route: 041
     Dates: start: 20200624, end: 20200624
  5. SODIUM CHLORIDE [Suspect]
     Active Substance: SODIUM CHLORIDE
     Dosage: NS 250ML + EPIRUBICIN 130 MG, SECOND CHEMOTHERAPY
     Route: 041
     Dates: start: 20200624, end: 20200624
  6. SODIUM CHLORIDE [Suspect]
     Active Substance: SODIUM CHLORIDE
     Dosage: DOSE REINTRODUCED, NS+ CYCLOPHOSPHAMIDE
     Route: 041
  7. SODIUM CHLORIDE [Suspect]
     Active Substance: SODIUM CHLORIDE
     Dosage: DOSE REINTRODUCED, NS+ EPIRUBICIN
     Route: 041
  8. EPIRUBICIN [Suspect]
     Active Substance: EPIRUBICIN
     Indication: Breast cancer female
     Dosage: FIRST CHEMOTHERAPY
     Route: 065
  9. EPIRUBICIN [Suspect]
     Active Substance: EPIRUBICIN
     Dosage: NS 250ML + EPIRUBICIN 130 MG, SECOND CHEMOTHERAPY
     Route: 041
     Dates: start: 20200624, end: 20200624
  10. EPIRUBICIN [Suspect]
     Active Substance: EPIRUBICIN
     Dosage: DOSE REINTRODUCED, NS+ EPIRUBICIN
     Route: 041

REACTIONS (2)
  - Leukopenia [Unknown]
  - Anaemia [Unknown]

NARRATIVE: CASE EVENT DATE: 20200627
